FAERS Safety Report 25306999 (Version 1)
Quarter: 2025Q2

REPORT INFORMATION
  Report Type: Spontaneous
  Country: US (occurrence: None)
  Receive Date: 20250513
  Receipt Date: 20250513
  Transmission Date: 20250716
  Serious: No
  Sender: FDA-CTU
  Company Number: None

PATIENT
  Age: 78 Year
  Sex: Female

DRUGS (11)
  1. COLLAGENASE SANTYL [Suspect]
     Active Substance: COLLAGENASE CLOSTRIDIUM HISTOLYTICUM
     Indication: Wound
     Dosage: OTHER STRENGTH : 250 U/GM;?OTHER QUANTITY : DIME THICKNESS;?FREQUENCY : DAILY;?
     Route: 061
     Dates: start: 20240608
  2. BUMETANIDE [Concomitant]
     Active Substance: BUMETANIDE
  3. CALCITRIOL [Concomitant]
     Active Substance: CALCITRIOL
  4. carvidilol [Concomitant]
  5. ELIQUIS [Concomitant]
     Active Substance: APIXABAN
  6. FEBUXOSTAT [Concomitant]
     Active Substance: FEBUXOSTAT
  7. gentamicin 0.1% cream [Concomitant]
  8. HYDROXYZINE HYDROCHLORIDE [Concomitant]
     Active Substance: HYDROXYZINE HYDROCHLORIDE
  9. LACTULOSE [Concomitant]
     Active Substance: LACTULOSE
  10. LEVOTHYROXINE [Concomitant]
     Active Substance: LEVOTHYROXINE
  11. MIDODRINE [Concomitant]
     Active Substance: MIDODRINE

REACTIONS (1)
  - Death [None]

NARRATIVE: CASE EVENT DATE: 20250512
